FAERS Safety Report 5839920-X (Version None)
Quarter: 2008Q3

REPORT INFORMATION
  Report Type: 
  Country: None (occurrence: None)
  Receive Date: 20080807
  Receipt Date: 20080727
  Transmission Date: 20090109
  Serious: Yes (Other)
  Sender: FDA-Public Use
  Company Number: CLOF-1000233

PATIENT
  Age: 13 Year
  Sex: Male
  Weight: 74.9 kg

DRUGS (2)
  1. CLOLAR [Suspect]
     Indication: ACUTE LYMPHOCYTIC LEUKAEMIA
     Dosage: 70 MG, QDX5, INTRAVENOUS
     Route: 042
     Dates: start: 20080521, end: 20080525
  2. BUSULFAN (BUSULFAN) [Suspect]
     Indication: ACUTE LYMPHOCYTIC LEUKAEMIA
     Dosage: 190 MG, QD, INTRAVENOUS
     Route: 042
     Dates: start: 20080522, end: 20080525

REACTIONS (1)
  - ACUTE LYMPHOCYTIC LEUKAEMIA RECURRENT [None]
